FAERS Safety Report 5995972-8 (Version None)
Quarter: 2008Q4

REPORT INFORMATION
  Report Type: 
  Country: None (occurrence: None)
  Receive Date: 20081212
  Receipt Date: 20081006
  Transmission Date: 20090506
  Serious: No
  Sender: FDA-Public Use
  Company Number: US-ABBOTT-08P-163-0480070-00

PATIENT
  Sex: Female
  Weight: 81.72 kg

DRUGS (9)
  1. HUMIRA [Suspect]
     Indication: CROHN'S DISEASE
     Route: 058
     Dates: start: 20080501
  2. ESOMEPRAZOLE MAGNESIUM [Concomitant]
     Indication: CROHN'S DISEASE
     Route: 048
  3. LOMOTIL [Concomitant]
     Indication: CROHN'S DISEASE
     Route: 048
  4. GABAPENTIN [Concomitant]
     Indication: FIBROMYALGIA
     Route: 048
  5. ERINN [Concomitant]
     Indication: CONTRACEPTION
     Route: 048
  6. PREDNISONE TAB [Concomitant]
     Indication: FIBROMYALGIA
     Route: 048
  7. MECLIZINE [Concomitant]
     Indication: VERTIGO
     Route: 048
  8. ONDANSETRON [Concomitant]
     Indication: NAUSEA
     Route: 048
  9. PAPAVER SOMNIFERUM TINCTURE [Concomitant]
     Indication: CROHN'S DISEASE
     Route: 048

REACTIONS (1)
  - ACCIDENTAL EXPOSURE [None]
